FAERS Safety Report 4900127-1 (Version None)
Quarter: 2006Q1

REPORT INFORMATION
  Report Type: 
  Country: None (occurrence: None)
  Receive Date: 20060131
  Receipt Date: 20060120
  Transmission Date: 20060701
  Serious: Yes (Hospitalization)
  Sender: FDA-Public Use
  Company Number: COV2-2005-00060

PATIENT
  Age: 51 Year
  Sex: Female
  Weight: 69 kg

DRUGS (11)
  1. FOSRENOL [Suspect]
     Indication: HYPERPHOSPHATAEMIA
     Dosage: 1250 MG,  3X/DAY; TID, ORAL
     Route: 048
     Dates: start: 20050404, end: 20050604
  2. SENSIPAR (CINACALCET HYDROCHLORIDE) TABLET [Concomitant]
  3. DARVOCET-N (DEXTROPROPOXYPHENE NAPSILATE) TABLET [Concomitant]
  4. LEVAQUIN [Concomitant]
  5. CATAPRES (CLONIDINE) TABLET [Concomitant]
  6. PRINIVIL [Concomitant]
  7. NEURONTIN (GABPENTIN) TABLET [Concomitant]
  8. NEXIUM [Concomitant]
  9. DAILY-VITE (MINERALS NOS, VITAMINS NOS) [Concomitant]
  10. COMBIVENT IIPRATROPIUM BROMIDE, SALBUTAMOL) [Concomitant]
  11. ELAVIL [Concomitant]

REACTIONS (19)
  - ACUTE MYOCARDIAL INFARCTION [None]
  - ALANINE AMINOTRANSFERASE INCREASED [None]
  - AORTIC ARTERIOSCLEROSIS [None]
  - ASPARTATE AMINOTRANSFERASE INCREASED [None]
  - ATELECTASIS [None]
  - BLOOD ALKALINE PHOSPHATASE INCREASED [None]
  - BLOOD CREATININE INCREASED [None]
  - BLOOD PRESSURE INCREASED [None]
  - BLOOD UREA INCREASED [None]
  - DILATATION ATRIAL [None]
  - ELECTROCARDIOGRAM ST SEGMENT ELEVATION [None]
  - INTESTINAL DILATATION [None]
  - PLEURAL EFFUSION [None]
  - PULMONARY HYPERTENSION [None]
  - PULMONARY VALVE INCOMPETENCE [None]
  - SMALL INTESTINAL OBSTRUCTION [None]
  - TRICUSPID VALVE INCOMPETENCE [None]
  - VENTRICULAR DYSKINESIA [None]
  - VENTRICULAR HYPERTROPHY [None]
